FAERS Safety Report 19783372 (Version 2)
Quarter: 2021Q3

REPORT INFORMATION
  Report Type: Spontaneous
  Country: US (occurrence: US)
  Receive Date: 20210903
  Receipt Date: 20210927
  Transmission Date: 20211014
  Serious: No
  Sender: FDA-Public Use
  Company Number: US-TEVA-2021-US-1947591

PATIENT
  Sex: Female

DRUGS (2)
  1. AUTOJECT (DEVICE) [Suspect]
     Active Substance: DEVICE
     Route: 065
  2. COPAXONE [Suspect]
     Active Substance: GLATIRAMER ACETATE
     Dosage: USING FOR 5 YEARS
     Route: 065

REACTIONS (7)
  - Injection site erythema [Recovered/Resolved]
  - Device issue [Unknown]
  - Device delivery system issue [Unknown]
  - Wrong technique in product usage process [Unknown]
  - Injection site swelling [Recovered/Resolved]
  - Dizziness [Unknown]
  - Injection site pain [Recovered/Resolved]
